FAERS Safety Report 9695756 (Version 1)
Quarter: 2013Q4

REPORT INFORMATION
  Report Type: Spontaneous
  Country: US (occurrence: US)
  Receive Date: 20131119
  Receipt Date: 20131119
  Transmission Date: 20140711
  Serious: Yes (Hospitalization)
  Sender: FDA-Public Use
  Company Number: US-ABBVIE-13P-163-1168704-00

PATIENT
  Age: 44 Year
  Sex: Male

DRUGS (3)
  1. DEPAKOTE [Suspect]
     Indication: BIPOLAR DISORDER
     Dosage: UNKNOWN
  2. LITHIUM [Concomitant]
     Indication: BIPOLAR DISORDER
  3. SEROQUEL [Concomitant]
     Indication: INSOMNIA

REACTIONS (2)
  - Paranoia [Recovered/Resolved]
  - Suicidal ideation [Recovered/Resolved]
